FAERS Safety Report 9177996 (Version 2)
Quarter: 2013Q2

REPORT INFORMATION
  Report Type: Spontaneous
  Country: CN (occurrence: CN)
  Receive Date: 20130321
  Receipt Date: 20130411
  Transmission Date: 20140414
  Serious: Yes (Hospitalization)
  Sender: FDA-Public Use
  Company Number: CN-ABBOTT-13P-035-1051617-00

PATIENT
  Age: 50 Year
  Sex: Male
  Weight: 60 kg

DRUGS (2)
  1. HUMIRA [Suspect]
     Indication: PSORIATIC ARTHROPATHY
     Route: 058
     Dates: start: 20120816, end: 20121227
  2. ANTI-TUBERCULOSIS THERAPY [Concomitant]
     Indication: ANTIBIOTIC PROPHYLAXIS
     Dates: start: 201208

REACTIONS (6)
  - Lung infection [Recovering/Resolving]
  - Pulmonary tuberculosis [Recovering/Resolving]
  - Arthralgia [Recovering/Resolving]
  - Syncope [Recovering/Resolving]
  - Cough [Recovered/Resolved]
  - Pyrexia [Recovering/Resolving]
